FAERS Safety Report 21902860 (Version 1)
Quarter: 2023Q1

REPORT INFORMATION
  Report Type: Spontaneous
  Country: NL (occurrence: NL)
  Receive Date: 20230124
  Receipt Date: 20230124
  Transmission Date: 20230417
  Serious: Yes (Other)
  Sender: FDA-Public Use
  Company Number: None

PATIENT
  Sex: Male
  Weight: 62.5 kg

DRUGS (2)
  1. AMOXICILLIN [Suspect]
     Active Substance: AMOXICILLIN
     Indication: Respiratory tract infection
     Dosage: 1500 MILLIGRAM DAILY;  BRAND NAME NOT SPECIFIED
     Route: 065
     Dates: start: 20221219
  2. CODEINE [Suspect]
     Active Substance: CODEINE
     Indication: Cough
     Dosage: 10 MILLIGRAM DAILY;  BRAND NAME NOT SPECIFIED
     Route: 065
     Dates: start: 20221217, end: 20221220

REACTIONS (2)
  - Hallucination [Recovered/Resolved]
  - Visual impairment [Recovering/Resolving]
